FAERS Safety Report 10984432 (Version 3)
Quarter: 2015Q3

REPORT INFORMATION
  Report Type: Spontaneous
  Country: US (occurrence: US)
  Receive Date: 20150403
  Receipt Date: 20150702
  Transmission Date: 20151125
  Serious: Yes (Other)
  Sender: FDA-Public Use
  Company Number: US-TAKEDA-2015TUS001308

PATIENT
  Age: 47 Year
  Sex: Female
  Weight: 65.76 kg

DRUGS (2)
  1. CONTRAVE [Suspect]
     Active Substance: BUPROPION HYDROCHLORIDE\NALTREXONE HYDROCHLORIDE
     Dosage: 8MG/90MG, AT NIGHT
     Route: 048
     Dates: end: 20150324
  2. CONTRAVE [Suspect]
     Active Substance: BUPROPION HYDROCHLORIDE\NALTREXONE HYDROCHLORIDE
     Indication: OVERWEIGHT
     Dosage: UNK
     Route: 048
     Dates: start: 20141120, end: 201502

REACTIONS (13)
  - Impaired gastric emptying [Unknown]
  - Fatigue [Unknown]
  - Syncope [Recovered/Resolved]
  - Nausea [Not Recovered/Not Resolved]
  - Drug dose omission [Recovered/Resolved]
  - Anxiety [Unknown]
  - Cold sweat [Recovered/Resolved]
  - Dehydration [Recovered/Resolved]
  - Hypotension [Recovering/Resolving]
  - Blood pressure increased [Recovered/Resolved]
  - Headache [Unknown]
  - Constipation [Unknown]
  - Feeling hot [Recovered/Resolved]

NARRATIVE: CASE EVENT DATE: 20150126
